FAERS Safety Report 5056536-6 (Version None)
Quarter: 2006Q3

REPORT INFORMATION
  Report Type: 
  Country: None (occurrence: None)
  Receive Date: 20060720
  Receipt Date: 20060428
  Transmission Date: 20061208
  Serious: Yes (Other)
  Sender: FDA-Public Use
  Company Number: JP-ABBOTT-06P-087-0331938-00

PATIENT
  Sex: Male

DRUGS (7)
  1. DEPEKENE [Suspect]
     Indication: DRUG USE FOR UNKNOWN INDICATION
     Route: 050
     Dates: start: 20060320, end: 20060402
  2. DEPEKENE [Suspect]
     Route: 050
     Dates: start: 20051229, end: 20060201
  3. DEPEKENE [Suspect]
     Route: 050
     Dates: start: 20060201, end: 20060319
  4. DEPEKENE [Suspect]
     Route: 050
     Dates: start: 20051207, end: 20051228
  5. LEUPLIN SR FOR INJECTION KIT [Suspect]
     Indication: PROSTATE CANCER
     Route: 058
     Dates: start: 20060330, end: 20060330
  6. TUBE FEEDING [Concomitant]
     Indication: PARENTERAL NUTRITION
     Route: 051
     Dates: end: 20060402
  7. TUBE FEEDING [Concomitant]
     Dates: start: 20060406

REACTIONS (7)
  - BILIRUBINURIA [None]
  - CHOLESTASIS [None]
  - GAMMA-GLUTAMYLTRANSFERASE INCREASED [None]
  - INFLAMMATION [None]
  - JAUNDICE [None]
  - PYREXIA [None]
  - SOMNOLENCE [None]
